FAERS Safety Report 15820550 (Version 1)
Quarter: 2019Q1

REPORT INFORMATION
  Report Type: Spontaneous
  Country: US (occurrence: US)
  Receive Date: 20190114
  Receipt Date: 20190114
  Transmission Date: 20190417
  Serious: No
  Sender: FDA-Public Use
  Company Number: US-SA-2019SA007950

PATIENT
  Age: 68 Year
  Sex: Male

DRUGS (8)
  1. AUBAGIO [Suspect]
     Active Substance: TERIFLUNOMIDE
     Dosage: 14 MG, QD
     Route: 048
     Dates: start: 20181219
  2. BUPROPION. [Concomitant]
     Active Substance: BUPROPION
  3. ALFUZOSIN [Concomitant]
     Active Substance: ALFUZOSIN
  4. AMPYRA [Concomitant]
     Active Substance: DALFAMPRIDINE
  5. TOPAMAX [Concomitant]
     Active Substance: TOPIRAMATE
  6. ALLOPURINOL. [Interacting]
     Active Substance: ALLOPURINOL
  7. SEROQUEL [Concomitant]
     Active Substance: QUETIAPINE FUMARATE
  8. VITAMIN D [Concomitant]
     Active Substance: CHOLECALCIFEROL
     Dosage: 2000 U

REACTIONS (1)
  - Nasopharyngitis [Not Recovered/Not Resolved]
